FAERS Safety Report 14172730 (Version 1)
Quarter: 2017Q4

REPORT INFORMATION
  Report Type: Spontaneous
  Country: US (occurrence: US)
  Receive Date: 20171108
  Receipt Date: 20171108
  Transmission Date: 20180321
  Serious: Yes (Death)
  Sender: FDA-Public Use
  Company Number: None

PATIENT
  Age: 68 Year
  Sex: Male
  Weight: 117.63 kg

DRUGS (6)
  1. VOSEVI [Suspect]
     Active Substance: SOFOSBUVIR\VELPATASVIR\VOXILAPREVIR
     Indication: HEPATITIS C
     Dates: start: 20170908, end: 20171103
  2. ESCITALOPRAM [Concomitant]
     Active Substance: ESCITALOPRAM OXALATE
  3. TIOTROPIUM [Concomitant]
     Active Substance: TIOTROPIUM
  4. ALBUTEROL. [Concomitant]
     Active Substance: ALBUTEROL
  5. DILTIAZEM. [Concomitant]
     Active Substance: DILTIAZEM
  6. BUDESONIDE/FORMOTEROL [Concomitant]
     Active Substance: BUDESONIDE\FORMOTEROL

REACTIONS (2)
  - Retroperitoneal haemorrhage [None]
  - International normalised ratio increased [None]
